FAERS Safety Report 9267972 (Version 1)
Quarter: 2013Q2

REPORT INFORMATION
  Report Type: Spontaneous
  Country: US (occurrence: US)
  Receive Date: 20130502
  Receipt Date: 20130502
  Transmission Date: 20140414
  Serious: No
  Sender: FDA-Public Use
  Company Number: US-ALEXION-A201201686

PATIENT
  Sex: Male
  Weight: 88 kg

DRUGS (1)
  1. SOLIRIS 300MG [Suspect]
     Indication: PAROXYSMAL NOCTURNAL HAEMOGLOBINURIA
     Dosage: UNK, Q12D
     Route: 042
     Dates: start: 20101207

REACTIONS (3)
  - Propionibacterium infection [Unknown]
  - Joint effusion [Unknown]
  - Arthralgia [Unknown]
